FAERS Safety Report 12488477 (Version 2)
Quarter: 2016Q3

REPORT INFORMATION
  Report Type: Spontaneous
  Country: JP (occurrence: JP)
  Receive Date: 20160622
  Receipt Date: 20160706
  Transmission Date: 20161109
  Serious: Yes (Hospitalization)
  Sender: FDA-Public Use
  Company Number: JP-SA-2016SA114478

PATIENT
  Age: 76 Year
  Sex: Male

DRUGS (1)
  1. CLOPIDOGREL BISULFATE. [Suspect]
     Active Substance: CLOPIDOGREL BISULFATE
     Indication: TRANSIENT ISCHAEMIC ATTACK
     Route: 065
     Dates: start: 201602

REACTIONS (7)
  - Streptococcal infection [Recovering/Resolving]
  - Oropharyngeal pain [Recovering/Resolving]
  - Bacterial sepsis [Recovering/Resolving]
  - Febrile neutropenia [Recovering/Resolving]
  - Pharyngitis [Recovering/Resolving]
  - Agranulocytosis [Recovering/Resolving]
  - White blood cell count decreased [Recovered/Resolved]

NARRATIVE: CASE EVENT DATE: 2016
